FAERS Safety Report 5949663-X (Version None)
Quarter: 2008Q4

REPORT INFORMATION
  Report Type: 
  Country: None (occurrence: None)
  Receive Date: 20081112
  Receipt Date: 20081103
  Transmission Date: 20090506
  Serious: Yes (Death, Hospitalization)
  Sender: FDA-Public Use
  Company Number: US-ELI_LILLY_AND_COMPANY-US200810003750

PATIENT
  Sex: Male
  Weight: 70.5 kg

DRUGS (11)
  1. PEMETREXED [Suspect]
     Indication: NON-SMALL CELL LUNG CANCER
     Dosage: 375 MG/M2, OTHER
     Route: 042
     Dates: start: 20080617, end: 20081002
  2. FOLIC ACID [Concomitant]
     Dosage: 1 MG, DAILY (1/D)
     Route: 048
     Dates: start: 20080603
  3. VITAMIN B-12 [Concomitant]
     Dates: start: 20080603
  4. DEXAMETHASONE 0.5MG TAB [Concomitant]
     Dates: start: 20080616, end: 20081003
  5. NORVASC [Concomitant]
     Dosage: 10 MG, DAILY (1/D)
     Route: 048
     Dates: start: 20080303
  6. SENOKOT [Concomitant]
     Route: 048
     Dates: start: 20080911
  7. MILK OF MAGNESIA [Concomitant]
     Dosage: UNK, UNK
     Dates: start: 20080729, end: 20081016
  8. LASIX [Concomitant]
     Dates: start: 20081002, end: 20081013
  9. POTASSIUM CHLORIDE [Concomitant]
     Dates: start: 20081002, end: 20081013
  10. OXYGEN [Concomitant]
  11. LISINOPRIL [Concomitant]

REACTIONS (4)
  - CARDIAC FAILURE [None]
  - HAEMOGLOBIN DECREASED [None]
  - NEUTROPENIA [None]
  - THROMBOCYTOPENIA [None]
